FAERS Safety Report 8437769-5 (Version None)
Quarter: 2012Q2

REPORT INFORMATION
  Report Type: 
  Country: None (occurrence: None)
  Receive Date: 20120614
  Receipt Date: 20120404
  Transmission Date: 20120825
  Serious: No
  Sender: FDA-Public Use
  Company Number: US-AMGEN-USASP2012016955

PATIENT
  Age: 71 Year
  Sex: Male

DRUGS (4)
  1. PROLIA [Suspect]
     Indication: BONE LOSS
     Dosage: 60 MG, Q6MO
     Dates: start: 20120215
  2. LIPITOR [Concomitant]
     Dosage: UNK
  3. ALPRAZOLAM [Concomitant]
     Dosage: UNK
  4. ZOLADEX [Concomitant]
     Dosage: UNK

REACTIONS (1)
  - LOCALISED INFECTION [None]
